FAERS Safety Report 12708473 (Version 1)
Quarter: 2016Q3

REPORT INFORMATION
  Report Type: Report from Study
  Country: BR (occurrence: BR)
  Receive Date: 20160901
  Receipt Date: 20160901
  Transmission Date: 20161109
  Serious: Yes (Other)
  Sender: FDA-Public Use
  Company Number: BR-PFIZER INC-2012092275

PATIENT
  Age: 66 Year
  Sex: Female
  Weight: 72.65 kg

DRUGS (7)
  1. IBUPROFEN. [Suspect]
     Active Substance: IBUPROFEN
     Indication: RHEUMATOID ARTHRITIS
     Dosage: 0 MG, UNK
     Route: 048
     Dates: start: 20120209, end: 20120411
  2. BETAHISTINE HYDROCHLORIDE [Concomitant]
     Active Substance: BETAHISTINE HYDROCHLORIDE
     Indication: VERTIGO
     Dosage: 24, 1X/DAY
     Route: 048
     Dates: start: 2010
  3. NEXIUM [Concomitant]
     Active Substance: ESOMEPRAZOLE MAGNESIUM
     Indication: PROPHYLAXIS
     Dosage: 40 MG, 1X/DAY
     Route: 048
     Dates: start: 20120208, end: 20120411
  4. SIMVASTATIN. [Concomitant]
     Active Substance: SIMVASTATIN
     Indication: DYSLIPIDAEMIA
     Dosage: 20, 1X/DAY
     Route: 048
     Dates: start: 2002
  5. TORLOS H [Concomitant]
     Active Substance: HYDROCHLOROTHIAZIDE\LOSARTAN POTASSIUM
     Indication: HYPERTENSION
     Dosage: HYDROCHLOROTHIAZIDE 12.5, LOSARTAN POTASSIUM 50, TWICE DAILY
     Route: 048
     Dates: start: 2007
  6. IBUPROFEN. [Suspect]
     Active Substance: IBUPROFEN
     Indication: OSTEOARTHRITIS
  7. METFORMIN [Concomitant]
     Active Substance: METFORMIN HYDROCHLORIDE
     Indication: DIABETES MELLITUS
     Dosage: 850, 1X/DAY
     Route: 048
     Dates: start: 2006

REACTIONS (1)
  - Abdominal pain upper [Recovered/Resolved]

NARRATIVE: CASE EVENT DATE: 20120409
